FAERS Safety Report 15941782 (Version 1)
Quarter: 2019Q1

REPORT INFORMATION
  Report Type: Spontaneous
  Country: US (occurrence: US)
  Receive Date: 20190210
  Receipt Date: 20190210
  Transmission Date: 20190417
  Serious: Yes (Hospitalization, Other)
  Sender: FDA-Public Use
  Company Number: None

PATIENT
  Age: 59 Year
  Sex: Female
  Weight: 63 kg

DRUGS (6)
  1. MULTI-VITAMIN WITH MINERALS [Concomitant]
  2. HCTZ 25/LISINOPRIL [Concomitant]
  3. POTASSIUM [Concomitant]
     Active Substance: POTASSIUM
  4. ATENOLOL. [Concomitant]
     Active Substance: ATENOLOL
  5. AMLODIPINE BESYLATE. [Concomitant]
     Active Substance: AMLODIPINE BESYLATE
  6. LUPRON DEPOT [Suspect]
     Active Substance: LEUPROLIDE ACETATE
     Indication: MENSTRUAL DISORDER
     Dosage: ?          OTHER FREQUENCY:ONCE EVERY 30 DAYS;?
     Route: 030

REACTIONS (8)
  - Muscle mass [None]
  - Sciatica [None]
  - Inappropriate schedule of product administration [None]
  - Benign neoplasm [None]
  - Arthralgia [None]
  - Overdose [None]
  - Product prescribing error [None]
  - Cerebrovascular accident [None]

NARRATIVE: CASE EVENT DATE: 20181214
